FAERS Safety Report 10203847 (Version 1)
Quarter: 2014Q2

REPORT INFORMATION
  Report Type: Spontaneous
  Country: US (occurrence: US)
  Receive Date: 20140529
  Receipt Date: 20140529
  Transmission Date: 20141212
  Serious: No
  Sender: FDA-Public Use
  Company Number: US-PFIZER INC-2014145685

PATIENT
  Age: 65 Year
  Sex: Female
  Weight: 61.22 kg

DRUGS (5)
  1. SUTENT [Suspect]
     Indication: METASTATIC RENAL CELL CARCINOMA
     Dosage: UNK
  2. ZOFRAN [Concomitant]
     Indication: NAUSEA
     Dosage: UNK
  3. XANAX [Concomitant]
     Dosage: UNK
  4. LOMOTIL [Concomitant]
     Indication: DIARRHOEA
     Dosage: UNK
  5. VICODIN [Concomitant]
     Indication: PAIN
     Dosage: UNK (HALF A TABLET)

REACTIONS (5)
  - Hypertension [Not Recovered/Not Resolved]
  - Depression [Unknown]
  - Anxiety [Unknown]
  - Disease progression [Not Recovered/Not Resolved]
  - Metastatic renal cell carcinoma [Not Recovered/Not Resolved]
